FAERS Safety Report 4521707-1 (Version None)
Quarter: 2004Q4

REPORT INFORMATION
  Report Type: 
  Country: None (occurrence: None)
  Receive Date: 20041208
  Receipt Date: 20041208
  Transmission Date: 20050328
  Serious: No
  Sender: FDA-Public Use
  Company Number: None

PATIENT
  Sex: Male
  Weight: 26.0818 kg

DRUGS (2)
  1. ATOMOXETINE 25 MG [Suspect]
     Indication: ATTENTION DEFICIT/HYPERACTIVITY DISORDER
     Dosage: 10 MG STARTING 11/3/04, THEN 25MG 1 PO Q DAY STARTING 11/16/04
     Route: 048
     Dates: start: 20041103
  2. CLONIDINE [Concomitant]

REACTIONS (2)
  - MUSCLE TWITCHING [None]
  - TIC [None]
